FAERS Safety Report 25396510 (Version 1)
Quarter: 2025Q2

REPORT INFORMATION
  Report Type: Spontaneous
  Country: US (occurrence: US)
  Receive Date: 20250604
  Receipt Date: 20250604
  Transmission Date: 20250717
  Serious: No
  Sender: ARS PHARMACEUTICALS OPERATIONS, INC.
  Company Number: US-ARS PHARMACEUTICALS OPERATIONS, INC.-2025ARP00026

PATIENT
  Age: 6 Decade
  Sex: Female

DRUGS (1)
  1. NEFFY [Suspect]
     Active Substance: EPINEPHRINE
     Indication: Hypersensitivity
     Route: 045
     Dates: start: 20250208, end: 20250208

REACTIONS (3)
  - Epistaxis [Not Recovered/Not Resolved]
  - Rhinalgia [Not Recovered/Not Resolved]
  - Nasal discomfort [Not Recovered/Not Resolved]

NARRATIVE: CASE EVENT DATE: 20250208
